FAERS Safety Report 6695929-8 (Version None)
Quarter: 2010Q2

REPORT INFORMATION
  Report Type: 
  Country: None (occurrence: None)
  Receive Date: 20100426
  Receipt Date: 20100419
  Transmission Date: 20101027
  Serious: Yes (Other)
  Sender: FDA-Public Use
  Company Number: US-ASTRAZENECA-2009UW19099

PATIENT
  Age: 16599 Day
  Sex: Female
  Weight: 86.2 kg

DRUGS (8)
  1. SEROQUEL [Suspect]
     Route: 048
     Dates: start: 20050404, end: 20050531
  2. SEROQUEL [Suspect]
     Route: 048
     Dates: start: 20060328, end: 20080616
  3. SEROQUEL [Suspect]
     Dosage: 400MG TO 800 GM AT NIGHT
     Route: 048
     Dates: start: 20070221
  4. LITHIUM CARBONATE [Concomitant]
     Indication: AFFECTIVE DISORDER
     Route: 048
     Dates: start: 20050404
  5. GEODON [Concomitant]
     Dosage: 40 MG PO BID TO 80 MG PO BID
     Route: 048
     Dates: start: 20050531
  6. PAXIL [Concomitant]
     Indication: DEPRESSION
     Dates: start: 20061218
  7. TRAZODONE HCL [Concomitant]
     Dosage: 50MG TO 100MG AT NIGHT
     Dates: start: 20070314
  8. PRILOSEC [Concomitant]
     Dates: start: 20080501

REACTIONS (3)
  - DIABETIC EYE DISEASE [None]
  - DIABETIC RETINOPATHY [None]
  - TYPE 2 DIABETES MELLITUS [None]
